FAERS Safety Report 7722499-5 (Version None)
Quarter: 2011Q3

REPORT INFORMATION
  Report Type: 
  Country: None (occurrence: None)
  Receive Date: 20110831
  Receipt Date: 20110819
  Transmission Date: 20111222
  Serious: Yes (Hospitalization)
  Sender: FDA-Public Use
  Company Number: US-PFIZER INC-2011191774

PATIENT
  Sex: Female

DRUGS (2)
  1. SORAFENIB [Suspect]
     Indication: THYROID CANCER
     Dosage: UNK
     Route: 048
     Dates: start: 20100729
  2. TEMSIROLIMUS [Suspect]
     Indication: THYROID CANCER
     Dosage: UNK
     Route: 042
     Dates: start: 20100729

REACTIONS (2)
  - SMALL INTESTINAL OBSTRUCTION [None]
  - ABDOMINAL PAIN [None]
